FAERS Safety Report 6937185-9 (Version None)
Quarter: 2010Q3

REPORT INFORMATION
  Report Type: 
  Country: None (occurrence: None)
  Receive Date: 20100823
  Receipt Date: 20100809
  Transmission Date: 20110219
  Serious: Yes (Hospitalization)
  Sender: FDA-Public Use
  Company Number: A0852176A

PATIENT
  Sex: Male
  Weight: 118.2 kg

DRUGS (9)
  1. AVANDIA [Suspect]
     Indication: DIABETES MELLITUS
     Dosage: 8MG PER DAY
     Route: 048
     Dates: start: 20010807, end: 20090101
  2. GLUCOPHAGE [Concomitant]
  3. MONOPRIL [Concomitant]
  4. LIPITOR [Concomitant]
  5. INSULIN [Concomitant]
  6. SINGULAIR [Concomitant]
  7. DIOVAN [Concomitant]
  8. PRAVASTATIN [Concomitant]
  9. PROAIR HFA [Concomitant]

REACTIONS (3)
  - CARDIAC FAILURE CONGESTIVE [None]
  - CARDIOMYOPATHY [None]
  - INTRACARDIAC THROMBUS [None]
